FAERS Safety Report 5089954-0 (Version None)
Quarter: 2006Q3

REPORT INFORMATION
  Report Type: 
  Country: None (occurrence: None)
  Receive Date: 20060828
  Receipt Date: 20060816
  Transmission Date: 20061208
  Serious: Yes (Hospitalization, Disabling, Other)
  Sender: FDA-Public Use
  Company Number: GB-BRISTOL-MYERS SQUIBB COMPANY-13478904

PATIENT
  Age: 38 Year
  Sex: Male
  Weight: 72 kg

DRUGS (5)
  1. REYATAZ [Suspect]
     Route: 048
     Dates: start: 20040801
  2. RITONAVIR [Concomitant]
     Route: 048
     Dates: start: 20040801
  3. TENOFOVIR DF [Concomitant]
     Dates: start: 20040801
  4. ZIDOVUDINE [Concomitant]
     Route: 048
     Dates: start: 20040801
  5. ANTIPSYCHOTIC [Concomitant]
     Indication: PSYCHOTIC DISORDER

REACTIONS (1)
  - NIGHTMARE [None]
